FAERS Safety Report 7007498-3 (Version None)
Quarter: 2010Q3

REPORT INFORMATION
  Report Type: 
  Country: None (occurrence: None)
  Receive Date: 20100922
  Receipt Date: 20100915
  Transmission Date: 20110219
  Serious: Yes (Hospitalization, Other)
  Sender: FDA-Public Use
  Company Number: GB-B.I. PHARMACEUTICALS,INC./RIDGEFIELD-2010-UK-00887UK

PATIENT
  Sex: Male

DRUGS (5)
  1. DIPYRIDAMOLE [Suspect]
     Dosage: 200 MG
     Route: 048
  2. ASPIRIN [Suspect]
     Dosage: 75 MG
     Route: 048
  3. SETRALINE [Concomitant]
     Dosage: 60 MG
     Route: 048
  4. SIMVASTATIN [Concomitant]
     Dosage: 40 MG
     Route: 048
  5. CO-CARELDOPA [Concomitant]
     Dosage: 150MG 4/1DAYS
     Route: 048

REACTIONS (2)
  - GASTROINTESTINAL HAEMORRHAGE [None]
  - HAEMATEMESIS [None]
